FAERS Safety Report 11695951 (Version 1)
Quarter: 2015Q4

REPORT INFORMATION
  Report Type: Spontaneous
  Country: US (occurrence: None)
  Receive Date: 20151103
  Receipt Date: 20151103
  Transmission Date: 20160304
  Serious: No
  Sender: FDA-Public Use
  Company Number: None

PATIENT
  Age: 66 Year
  Sex: Female
  Weight: 53.52 kg

DRUGS (11)
  1. SYNTHROID [Concomitant]
     Active Substance: LEVOTHYROXINE SODIUM
  2. XANAX [Concomitant]
     Active Substance: ALPRAZOLAM
  3. ONE A DAY MULTI [Concomitant]
  4. VITAMIN C [Concomitant]
     Active Substance: ASCORBIC ACID
  5. SPIRONOLACTONE. [Concomitant]
     Active Substance: SPIRONOLACTONE
  6. VITAMIN D [Concomitant]
     Active Substance: CHOLECALCIFEROL
  7. VITAMIN B COMPLEX [Concomitant]
     Active Substance: CYANOCOBALAMIN\DEXPANTHENOL\NIACINAMIDE\PYRIDOXINE HYDROCHLORIDE\RIBOFLAVIN 5^-PHOSPHATE SODIUM\THIAMINE HYDROCHLORIDE\VITAMIN B COMPLEX
  8. CALCIPOTRIENE CREAM .005% GLENMARK [Suspect]
     Active Substance: CALCIPOTRIENE
     Indication: MORPHOEA
     Dosage: APPLIED TO A SURFACE, USUALLY THE SKIN
     Dates: start: 20150910, end: 20150911
  9. KRILL OIL [Concomitant]
     Active Substance: DIETARY SUPPLEMENT
  10. LEUTEIN/XEAXANTHIN [Concomitant]
  11. FLEXERIL [Concomitant]
     Active Substance: CYCLOBENZAPRINE HYDROCHLORIDE

REACTIONS (2)
  - Periorbital oedema [None]
  - Fluid retention [None]

NARRATIVE: CASE EVENT DATE: 20150910
